FAERS Safety Report 9658031 (Version 2)
Quarter: 2013Q4

REPORT INFORMATION
  Report Type: Spontaneous
  Country: US (occurrence: US)
  Receive Date: 20131030
  Receipt Date: 20131030
  Transmission Date: 20140711
  Serious: No
  Sender: FDA-Public Use
  Company Number: US-ELI_LILLY_AND_COMPANY-US201110004786

PATIENT
  Age: 64 Year
  Sex: Female

DRUGS (2)
  1. CIALIS [Suspect]
     Indication: RAYNAUD^S PHENOMENON
     Dosage: 2.5 MG, QD
     Route: 065
     Dates: start: 201110
  2. NEXIUM [Concomitant]
     Dosage: 1 DF, UNKNOWN

REACTIONS (4)
  - Vision blurred [Unknown]
  - Cataract [Recovered/Resolved]
  - Off label use [Unknown]
  - Wrong technique in drug usage process [Recovered/Resolved]
